FAERS Safety Report 9661161 (Version 1)
Quarter: 2013Q4

REPORT INFORMATION
  Report Type: Spontaneous
  Country: US (occurrence: US)
  Receive Date: 20131031
  Receipt Date: 20131031
  Transmission Date: 20140711
  Serious: Yes (Death)
  Sender: FDA-Public Use
  Company Number: US-SHIONOGI, INC-2013000324

PATIENT
  Age: 68 Year
  Sex: 0

DRUGS (4)
  1. CEPHALEXIN [Suspect]
     Indication: BLISTER
     Route: 048
  2. CEPHALEXIN [Suspect]
     Indication: BLISTER
  3. DIURETIC [Concomitant]
     Indication: PRODUCT USED FOR UNKNOWN INDICATION
     Dosage: UNK
     Route: 065
  4. DRUGS USED IN DIABETES [Concomitant]
     Indication: DIABETES MELLITUS
     Route: 065

REACTIONS (1)
  - Death [Fatal]
